FAERS Safety Report 6245874-7 (Version None)
Quarter: 2009Q2

REPORT INFORMATION
  Report Type: 
  Country: None (occurrence: None)
  Receive Date: 20090626
  Receipt Date: 20090618
  Transmission Date: 20091009
  Serious: Yes (Other)
  Sender: FDA-Public Use
  Company Number: CH-BRISTOL-MYERS SQUIBB COMPANY-14679047

PATIENT
  Age: 67 Year
  Sex: Male

DRUGS (2)
  1. ERBITUX [Suspect]
     Indication: COLON CANCER METASTATIC
     Dates: start: 20080101
  2. AVASTIN [Concomitant]
     Indication: COLON CANCER METASTATIC

REACTIONS (3)
  - LOOSE TOOTH [None]
  - SKIN REACTION [None]
  - TOOTH LOSS [None]
